FAERS Safety Report 11415417 (Version 1)
Quarter: 2015Q3

REPORT INFORMATION
  Report Type: Spontaneous
  Country: US (occurrence: US)
  Receive Date: 20150825
  Receipt Date: 20150825
  Transmission Date: 20151125
  Serious: Yes (Hospitalization, Other)
  Sender: FDA-Public Use
  Company Number: PHEH2015US016054

PATIENT
  Sex: Female
  Weight: 42.18 kg

DRUGS (1)
  1. ENTRESTO [Suspect]
     Active Substance: SACUBITRIL\VALSARTAN
     Indication: PRODUCT USED FOR UNKNOWN INDICATION
     Dosage: 1 DF, BID
     Route: 065
     Dates: start: 20150814, end: 20150816

REACTIONS (5)
  - Fall [Unknown]
  - Syncope [Unknown]
  - Loss of consciousness [Unknown]
  - Head injury [Unknown]
  - Blood pressure decreased [Unknown]
